FAERS Safety Report 6954690-X (Version None)
Quarter: 2010Q3

REPORT INFORMATION
  Report Type: 
  Country: None (occurrence: None)
  Receive Date: 20100829
  Receipt Date: 20100820
  Transmission Date: 20110219
  Serious: Yes (Hospitalization)
  Sender: FDA-Public Use
  Company Number: US-US-EMD SERONO, INC.-7015217

PATIENT
  Sex: Female

DRUGS (2)
  1. REBIF [Suspect]
     Route: 058
     Dates: start: 20100806, end: 20100801
  2. REBIF [Suspect]
     Route: 058
     Dates: start: 20100801

REACTIONS (1)
  - MULTIPLE SCLEROSIS RELAPSE [None]
